FAERS Safety Report 6219802-4 (Version None)
Quarter: 2009Q2

REPORT INFORMATION
  Report Type: 
  Country: None (occurrence: None)
  Receive Date: 20090609
  Receipt Date: 20090603
  Transmission Date: 20091009
  Serious: Yes (Hospitalization)
  Sender: FDA-Public Use
  Company Number: AU-JNJFOC-20090601529

PATIENT
  Sex: Female
  Weight: 55 kg

DRUGS (6)
  1. TOPIRAMATE [Suspect]
     Indication: EPILEPSY
     Route: 048
  2. LEVETIRACETAM [Concomitant]
     Indication: EPILEPSY
     Route: 048
  3. FOLIC ACID [Concomitant]
     Indication: MEDICAL DIET
     Route: 048
  4. ELEVIT [Concomitant]
     Indication: VITAMIN SUPPLEMENTATION
     Route: 048
  5. ENDONE [Concomitant]
     Indication: DRUG USE FOR UNKNOWN INDICATION
  6. MORPHINE [Concomitant]
     Indication: ABDOMINAL PAIN

REACTIONS (3)
  - ABDOMINAL PAIN [None]
  - DRUG EXPOSURE DURING PREGNANCY [None]
  - FOETAL GROWTH RETARDATION [None]
